FAERS Safety Report 12411652 (Version 1)
Quarter: 2016Q2

REPORT INFORMATION
  Report Type: Spontaneous
  Country: US (occurrence: US)
  Receive Date: 20160527
  Receipt Date: 20160527
  Transmission Date: 20160815
  Serious: Yes (Other)
  Sender: FDA-Public Use
  Company Number: US-BAYER-2016-101967

PATIENT
  Sex: Male

DRUGS (1)
  1. ALEVE [Suspect]
     Active Substance: NAPROXEN SODIUM
     Indication: ARTHRALGIA
     Dosage: 2 DF, PRN
     Route: 048

REACTIONS (4)
  - Cholecystectomy [Recovered/Resolved]
  - Pneumonia [None]
  - Cholecystitis infective [None]
  - Urinary tract infection [None]

NARRATIVE: CASE EVENT DATE: 201605
